FAERS Safety Report 19687887 (Version 1)
Quarter: 2021Q3

REPORT INFORMATION
  Report Type: Spontaneous
  Country: US (occurrence: US)
  Receive Date: 20210811
  Receipt Date: 20210811
  Transmission Date: 20211014
  Serious: No
  Sender: FDA-Public Use
  Company Number: US-PFIZER INC-2021556384

PATIENT
  Age: 47 Year
  Sex: Female
  Weight: 76.64 kg

DRUGS (1)
  1. BOSULIF [Suspect]
     Active Substance: BOSUTINIB MONOHYDRATE
     Indication: CHRONIC MYELOID LEUKAEMIA
     Dosage: 400 MG
     Dates: start: 20210514

REACTIONS (2)
  - Headache [Unknown]
  - Vomiting [Unknown]
